FAERS Safety Report 23624943 (Version 2)
Quarter: 2024Q1

REPORT INFORMATION
  Report Type: Spontaneous
  Country: US (occurrence: US)
  Receive Date: 20240313
  Receipt Date: 20240325
  Transmission Date: 20240409
  Serious: Yes (Other)
  Sender: FDA-Public Use
  Company Number: US-TEVA-VS-3166082

PATIENT
  Age: 54 Year
  Sex: Female

DRUGS (10)
  1. LETROZOLE [Suspect]
     Active Substance: LETROZOLE
     Indication: HER2 positive breast cancer
     Route: 065
  2. WARFARIN [Suspect]
     Active Substance: WARFARIN
     Indication: Product used for unknown indication
     Route: 065
  3. FEXOFENADINE [Concomitant]
     Active Substance: FEXOFENADINE HYDROCHLORIDE
     Route: 065
  4. FAMOTIDINE [Concomitant]
     Active Substance: FAMOTIDINE
     Route: 065
  5. FLUTICASONE [Concomitant]
     Active Substance: FLUTICASONE
     Route: 065
  6. OMEPRAZOLE [Concomitant]
     Active Substance: OMEPRAZOLE
     Route: 065
  7. LISINOPRIL [Concomitant]
     Active Substance: LISINOPRIL
     Route: 065
  8. WARFARIN [Suspect]
     Active Substance: WARFARIN
     Route: 065
  9. CEPHALEXIN [Concomitant]
     Active Substance: CEPHALEXIN
     Route: 065
  10. ROCEPHIN [Concomitant]
     Active Substance: CEFTRIAXONE SODIUM
     Route: 065

REACTIONS (22)
  - Mast cell activation syndrome [Not Recovered/Not Resolved]
  - Anxiety [Unknown]
  - Coronary artery disease [Unknown]
  - Cellulitis [Unknown]
  - Coronary artery occlusion [Unknown]
  - Allergic reaction to excipient [Unknown]
  - Cerebrospinal fluid leakage [Unknown]
  - Osteopenia [Unknown]
  - Polycystic ovarian syndrome [Unknown]
  - Haemarthrosis [Unknown]
  - Dural arteriovenous fistula [Unknown]
  - Uveitis [Unknown]
  - Hot flush [Unknown]
  - Depression [Unknown]
  - Headache [Unknown]
  - Ehlers-Danlos syndrome [Unknown]
  - Angle closure glaucoma [Unknown]
  - Ophthalmic migraine [Unknown]
  - Diabetes mellitus [Unknown]
  - Lymphoedema [Unknown]
  - Gastrooesophageal reflux disease [Unknown]
  - Rash [Unknown]
